FAERS Safety Report 9369638 (Version 1)
Quarter: 2013Q2

REPORT INFORMATION
  Report Type: Report from Study
  Country: GB (occurrence: GB)
  Receive Date: 20130626
  Receipt Date: 20130626
  Transmission Date: 20140414
  Serious: Yes (Hospitalization)
  Sender: FDA-Public Use
  Company Number: GB-ROCHE-1239898

PATIENT
  Age: 41 Year
  Sex: Female
  Weight: 50.45 kg

DRUGS (1)
  1. BEVACIZUMAB [Suspect]
     Indication: BREAST CANCER
     Dosage: LAST DOSE PRIOR TO SAE 22/MAY/2013
     Route: 042
     Dates: start: 20110812

REACTIONS (1)
  - Psychotic disorder [Recovering/Resolving]
